FAERS Safety Report 6669137-0 (Version None)
Quarter: 2010Q2

REPORT INFORMATION
  Report Type: 
  Country: None (occurrence: None)
  Receive Date: 20100402
  Receipt Date: 20100329
  Transmission Date: 20101027
  Serious: Yes (Other)
  Sender: FDA-Public Use
  Company Number: DSA_42730_2010

PATIENT
  Sex: Female
  Weight: 82.0103 kg

DRUGS (29)
  1. XENAZINE [Suspect]
     Indication: CHOREA
     Dosage: SEE IMAGE
     Route: 048
     Dates: start: 20080619, end: 20100224
  2. XENAZINE [Suspect]
     Indication: CHOREA
     Dosage: SEE IMAGE
     Route: 048
     Dates: start: 20080619, end: 20100224
  3. XENAZINE [Suspect]
     Indication: CHOREA
     Dosage: SEE IMAGE
     Route: 048
     Dates: start: 20100224, end: 20100315
  4. XENAZINE [Suspect]
     Indication: CHOREA
     Dosage: SEE IMAGE
     Route: 048
     Dates: start: 20100315
  5. XENAZINE [Suspect]
     Indication: CHOREA
     Dosage: SEE IMAGE
     Route: 048
     Dates: start: 20100315
  6. BACTRIM [Suspect]
     Indication: URINARY TRACT INFECTION
     Dosage: STRENGTH UNSPECIFIED BID ORAL
     Route: 048
     Dates: start: 20100213, end: 20100223
  7. GLYBURIDE [Concomitant]
  8. PREDNISONE [Concomitant]
  9. FUROSEMIDE [Concomitant]
  10. LISINOPRIL [Concomitant]
  11. ARTIFICIAL TEARS /90046201/ [Concomitant]
  12. ACETAMINOPHEN [Concomitant]
  13. DIGOXIN [Concomitant]
  14. OMEPRAZOLE [Concomitant]
  15. MAALOX /00091001/ [Concomitant]
  16. SALINE /00075401/ [Concomitant]
  17. TRAMADOL HYDROCHLORIDE [Concomitant]
  18. SIMETHICONE [Concomitant]
  19. ALBUTEROL SULFATE AND IPRATROPIUM BROMIDE [Concomitant]
  20. LORAZEPAM [Concomitant]
  21. VITAMINA C /00008001/ [Concomitant]
  22. CALCIUM W/ VITAMIN D NOS [Concomitant]
  23. METOPROLOL TARTRATE [Concomitant]
  24. METHENAMINE HIPPURATE [Concomitant]
  25. CHOLESTYRAMINE [Concomitant]
  26. POTASSIUM CHLORIDE [Concomitant]
  27. GUAISOR DM [Concomitant]
  28. LEXAPRO [Concomitant]
  29. COUMADIN [Concomitant]

REACTIONS (3)
  - AGITATION [None]
  - CONFUSIONAL STATE [None]
  - HALLUCINATION, VISUAL [None]
